FAERS Safety Report 25140419 (Version 1)
Quarter: 2025Q1

REPORT INFORMATION
  Report Type: Spontaneous
  Country: US (occurrence: None)
  Receive Date: 20250328
  Receipt Date: 20250328
  Transmission Date: 20250408
  Serious: Yes (Life-Threatening, Hospitalization)
  Sender: FDA-CTU
  Company Number: None

PATIENT
  Age: 80 Year
  Sex: Male

DRUGS (2)
  1. LINEZOLID [Suspect]
     Active Substance: LINEZOLID
     Dosage: FREQUENCY : TWICE A DAY;?
     Route: 048
     Dates: start: 20241129, end: 20241209
  2. PIPERACILLIN SODIUM\TAZOBACTAM SODIUM [Suspect]
     Active Substance: PIPERACILLIN SODIUM\TAZOBACTAM SODIUM
     Dosage: FREQUENCY : 3 TIMES A DAY;?
     Route: 042
     Dates: start: 20241118

REACTIONS (6)
  - Pancytopenia [None]
  - Thrombocytopenia [None]
  - Gastric haemorrhage [None]
  - Blood loss anaemia [None]
  - Nephrogenic anaemia [None]
  - Myelosuppression [None]

NARRATIVE: CASE EVENT DATE: 20241208
